FAERS Safety Report 6376490-4 (Version None)
Quarter: 2009Q3

REPORT INFORMATION
  Report Type: 
  Country: None (occurrence: None)
  Receive Date: 20090921
  Receipt Date: 20090909
  Transmission Date: 20100115
  Serious: Yes (Hospitalization)
  Sender: FDA-Public Use
  Company Number: ADR24712009

PATIENT
  Age: 55 Year
  Sex: Female

DRUGS (10)
  1. ALENDRONATE SODIUM [Suspect]
     Indication: PROPHYLAXIS
  2. REVLIMID [Concomitant]
  3. AMITRIPTYLINE [Concomitant]
  4. ASPIRIN [Concomitant]
  5. DEXAMETHASONE 4MG TAB [Concomitant]
  6. METOCLOPRAMIDE [Concomitant]
  7. OMEPRAZOLE [Concomitant]
  8. SYMBICORT [Concomitant]
  9. TRAMADOL HCL [Concomitant]
  10. VENTOLIN [Concomitant]

REACTIONS (4)
  - BLOOD ALKALINE PHOSPHATASE INCREASED [None]
  - DEHYDRATION [None]
  - HYPOCALCAEMIA [None]
  - RENAL FAILURE ACUTE [None]
